FAERS Safety Report 13563041 (Version 2)
Quarter: 2017Q3

REPORT INFORMATION
  Report Type: Spontaneous
  Country: US (occurrence: US)
  Receive Date: 20170519
  Receipt Date: 20170728
  Transmission Date: 20171127
  Serious: Yes (Disabling)
  Sender: FDA-Public Use
  Company Number: PHEH2017US014180

PATIENT
  Sex: Female

DRUGS (1)
  1. GILENYA [Suspect]
     Active Substance: FINGOLIMOD HYDROCHLORIDE
     Indication: PRODUCT USED FOR UNKNOWN INDICATION
     Route: 065

REACTIONS (11)
  - General physical health deterioration [Unknown]
  - Viral infection [Unknown]
  - Drug ineffective [Unknown]
  - Hypersensitivity [Unknown]
  - Multiple sclerosis relapse [Unknown]
  - Immunodeficiency [Unknown]
  - Rash [Unknown]
  - Infection [Unknown]
  - Acne cystic [Unknown]
  - Burning sensation [Unknown]
  - Malaise [Unknown]
